FAERS Safety Report 8121615-3 (Version None)
Quarter: 2012Q1

REPORT INFORMATION
  Report Type: 
  Country: None (occurrence: None)
  Receive Date: 20120208
  Receipt Date: 20120203
  Transmission Date: 20120608
  Serious: Yes (Hospitalization, Other)
  Sender: FDA-Public Use
  Company Number: 2012SP000320

PATIENT
  Sex: Female

DRUGS (3)
  1. LUNESTA [Suspect]
     Route: 048
  2. LUNESTA [Suspect]
     Indication: INSOMNIA
     Route: 048
  3. LUNESTA [Suspect]
     Route: 048

REACTIONS (2)
  - BREAST CANCER [None]
  - MIDDLE INSOMNIA [None]
